FAERS Safety Report 5574455-3 (Version None)
Quarter: 2007Q4

REPORT INFORMATION
  Report Type: 
  Country: None (occurrence: None)
  Receive Date: 20071227
  Receipt Date: 20071213
  Transmission Date: 20080405
  Serious: Yes (Death)
  Sender: FDA-Public Use
  Company Number: US-PFIZER INC-2007105518

PATIENT
  Sex: Female
  Weight: 78.5 kg

DRUGS (3)
  1. LIPITOR [Suspect]
     Indication: BLOOD CHOLESTEROL
     Route: 048
  2. NORVASC [Suspect]
     Indication: BLOOD PRESSURE
     Route: 048
  3. CHANTIX [Suspect]
     Indication: EX-SMOKER
     Route: 048

REACTIONS (1)
  - DEATH [None]
